FAERS Safety Report 19869282 (Version 9)
Quarter: 2024Q3

REPORT INFORMATION
  Report Type: Report from Study
  Country: MX (occurrence: MX)
  Receive Date: 20210922
  Receipt Date: 20240829
  Transmission Date: 20241017
  Serious: Yes (Hospitalization, Other)
  Sender: TAKEDA
  Company Number: MX-TAKEDA-MX201943942

PATIENT
  Age: 6 Year
  Sex: Male
  Weight: 24 kg

DRUGS (6)
  1. IDURSULFASE [Suspect]
     Active Substance: IDURSULFASE
     Indication: Mucopolysaccharidosis II
     Dosage: 2 DOSAGE FORM, 1/WEEK
     Route: 042
     Dates: start: 2017
  2. IDURSULFASE [Suspect]
     Active Substance: IDURSULFASE
     Dosage: 13.5 MILLIGRAM, 1/WEEK
     Route: 042
  3. IDURSULFASE [Suspect]
     Active Substance: IDURSULFASE
     Dosage: UNK UNK, 1/WEEK
     Route: 042
  4. VALPROATE MAGNESIUM [Suspect]
     Active Substance: VALPROATE MAGNESIUM
     Indication: Product used for unknown indication
     Dosage: 3 MILLILITER
     Route: 065
  5. LEVETIRACETAM [Concomitant]
     Active Substance: LEVETIRACETAM
     Indication: Seizure
     Dosage: 500 MILLIGRAM
     Route: 065
     Dates: start: 2023
  6. MILK OF MAGNESIA [Concomitant]
     Active Substance: MAGNESIUM HYDROXIDE
     Dosage: UNK
     Route: 065

REACTIONS (21)
  - Food poisoning [Recovered/Resolved]
  - Epilepsy [Recovered/Resolved]
  - Seizure [Recovered/Resolved]
  - Fall [Recovering/Resolving]
  - Incorrect dose administered [Unknown]
  - Discouragement [Unknown]
  - Lethargy [Unknown]
  - Somnolence [Unknown]
  - Eructation [Unknown]
  - Cough [Recovering/Resolving]
  - Malaise [Unknown]
  - Head injury [Recovering/Resolving]
  - Bronchitis [Not Recovered/Not Resolved]
  - Toothache [Not Recovered/Not Resolved]
  - Secretion discharge [Recovered/Resolved]
  - Throat clearing [Not Recovered/Not Resolved]
  - Ephelides [Not Recovered/Not Resolved]
  - Body temperature abnormal [Recovered/Resolved]
  - Product availability issue [Unknown]
  - Product dose omission issue [Unknown]
  - Inappropriate schedule of product administration [Unknown]

NARRATIVE: CASE EVENT DATE: 20191203
